FAERS Safety Report 8949438 (Version 1)
Quarter: 2012Q4

REPORT INFORMATION
  Report Type: 
  Country: US (occurrence: US)
  Receive Date: 20121206
  Receipt Date: 20121206
  Transmission Date: 20130627
  Serious: Yes (Hospitalization, Other)
  Sender: FDA-Public Use
  Company Number: US-PFIZER INC-2012298413

PATIENT
  Age: 54 Year
  Sex: Male
  Weight: 158.73 kg

DRUGS (2)
  1. CELEBREX [Suspect]
     Indication: NEUROPATHY
     Dosage: UNK, 1x/day
     Route: 048
     Dates: end: 201211
  2. ZOLOFT [Suspect]
     Dosage: UNK
     Route: 048

REACTIONS (7)
  - Infected cyst [Recovered/Resolved]
  - Staphylococcal infection [Recovered/Resolved]
  - Infection [Unknown]
  - Blister [Unknown]
  - Erythema [Unknown]
  - Arthropod bite [Unknown]
  - Off label use [Unknown]
